FAERS Safety Report 4676659-0 (Version None)
Quarter: 2005Q2

REPORT INFORMATION
  Report Type: 
  Country: None (occurrence: None)
  Receive Date: 20050526
  Receipt Date: 20050513
  Transmission Date: 20051028
  Serious: Yes (Other)
  Sender: FDA-Public Use
  Company Number: 2005075731

PATIENT
  Sex: Female
  Weight: 81.6475 kg

DRUGS (8)
  1. BEXTRA [Suspect]
     Indication: ABASIA
  2. BEXTRA [Suspect]
     Indication: ARTHRITIS
  3. PROPACET 100 [Concomitant]
  4. ALPRAZOLAM [Concomitant]
  5. LISINOPRIL [Concomitant]
  6. CHOLESTEROL- AND TRIGLYCERIDE REDUCERS (CHOLESTEROL-AND TRIGLYCERIDE R [Concomitant]
  7. ALL OTHER THERAPEUTIC PRODUCTS (ALL OTHER THERAPEUTIC PRODUCTS) [Concomitant]
  8. ROFECOXIB [Concomitant]

REACTIONS (7)
  - DYSPNOEA [None]
  - ERYTHEMA [None]
  - HAEMORRHAGE [None]
  - INFLAMMATION [None]
  - SKIN LESION [None]
  - URINARY TRACT INFECTION [None]
  - VERTEBRAL COLUMN MASS [None]
